FAERS Safety Report 16756356 (Version 1)
Quarter: 2019Q4

REPORT INFORMATION
  Report Type: Spontaneous
  Country: US (occurrence: US)
  Receive Date: 20190829
  Receipt Date: 20190829
  Transmission Date: 20200122
  Serious: Yes (Hospitalization)
  Sender: FDA-Public Use
  Company Number: None

PATIENT
  Age: 79 Year
  Sex: Male
  Weight: 47.26 kg

DRUGS (2)
  1. IBANDRONATE [Suspect]
     Active Substance: IBANDRONATE SODIUM
     Indication: OSTEOPOROSIS
     Dosage: ?          OTHER FREQUENCY:ONCE A MONTH;?
     Route: 048
  2. ASPIRIN 81MG DAILY [Concomitant]
     Active Substance: ASPIRIN
     Dates: start: 20090801

REACTIONS (7)
  - Hiatus hernia [None]
  - Oesophagitis ulcerative [None]
  - Pneumonia aspiration [None]
  - Vomiting [None]
  - Gastric occult blood positive [None]
  - Gastritis [None]
  - Polycythaemia vera [None]

NARRATIVE: CASE EVENT DATE: 20190612
